FAERS Safety Report 13456501 (Version 1)
Quarter: 2017Q2

REPORT INFORMATION
  Report Type: Spontaneous
  Country: CA (occurrence: CA)
  Receive Date: 20170418
  Receipt Date: 20170418
  Transmission Date: 20170830
  Serious: Yes (Other)
  Sender: FDA-Public Use
  Company Number: CA-GILEAD-2017-0267405

PATIENT
  Age: 44 Year
  Sex: Female

DRUGS (5)
  1. TENOFOVIR [Concomitant]
     Active Substance: TENOFOVIR
  2. RITONAVIR. [Concomitant]
     Active Substance: RITONAVIR
  3. EMTRIVA [Concomitant]
     Active Substance: EMTRICITABINE
  4. DARUNAVIR [Concomitant]
     Active Substance: DARUNAVIR
  5. HARVONI [Suspect]
     Active Substance: LEDIPASVIR\SOFOSBUVIR
     Indication: CHRONIC HEPATITIS C
     Dosage: UNK
     Route: 065

REACTIONS (1)
  - Basedow^s disease [Unknown]
